FAERS Safety Report 7273289-1 (Version None)
Quarter: 2011Q1

REPORT INFORMATION
  Report Type: 
  Country: None (occurrence: None)
  Receive Date: 20110203
  Receipt Date: 20101208
  Transmission Date: 20110831
  Serious: No
  Sender: FDA-Public Use
  Company Number: US-ABBOTT-10P-163-0690346-00

PATIENT
  Age: 71 Year
  Sex: Male
  Weight: 70.37 kg

DRUGS (2)
  1. MULTIVITAMIN [Concomitant]
     Indication: PRODUCT USED FOR UNKNOWN INDICATION
  2. SYNTHROID [Suspect]
     Indication: HYPOTHYROIDISM

REACTIONS (3)
  - DRUG EFFECT DECREASED [None]
  - UNDERDOSE [None]
  - FOREIGN BODY [None]
